FAERS Safety Report 17515818 (Version 1)
Quarter: 2020Q1

REPORT INFORMATION
  Report Type: Spontaneous
  Country: DE (occurrence: DE)
  Receive Date: 20200309
  Receipt Date: 20200309
  Transmission Date: 20200409
  Serious: Yes (Death)
  Sender: FDA-Public Use
  Company Number: NVSC2020DE065575

PATIENT
  Sex: Male
  Weight: 99 kg

DRUGS (2)
  1. PEGFILGRASTIM [Suspect]
     Active Substance: PEGFILGRASTIM
     Indication: PRODUCT USED FOR UNKNOWN INDICATION
     Dosage: UNK (1ST CYCLE)
     Route: 065
     Dates: start: 20190607
  2. PEGFILGRASTIM [Suspect]
     Active Substance: PEGFILGRASTIM
     Dosage: 6 MG (2ND CYCLE)
     Route: 058
     Dates: start: 20190712

REACTIONS (1)
  - Death [Fatal]

NARRATIVE: CASE EVENT DATE: 20190902
